FAERS Safety Report 16930056 (Version 4)
Quarter: 2021Q4

REPORT INFORMATION
  Report Type: Report from Study
  Country: DE (occurrence: DE)
  Receive Date: 20191017
  Receipt Date: 20211202
  Transmission Date: 20220304
  Serious: Yes (Hospitalization)
  Sender: FDA-Public Use
  Company Number: DE-SA-2019SA284379

PATIENT
  Age: 60 Year
  Sex: Female
  Weight: 73 kg

DRUGS (17)
  1. AFLIBERCEPT [Suspect]
     Active Substance: AFLIBERCEPT
     Indication: Colorectal cancer metastatic
     Dosage: 300 MG, QCY
     Route: 042
     Dates: start: 20190814, end: 20190814
  2. AFLIBERCEPT [Suspect]
     Active Substance: AFLIBERCEPT
     Indication: Colorectal cancer metastatic
     Dosage: 300 MG, QCY
     Route: 042
     Dates: start: 20190814, end: 20190814
  3. INVESTIGATIONAL PRODUCT [Suspect]
     Active Substance: INVESTIGATIONAL PRODUCT
     Indication: Colorectal cancer metastatic
     Dosage: 300 MG, QCY
     Route: 042
     Dates: start: 20190814, end: 20190814
  4. PLACEBO [Suspect]
     Active Substance: UNSPECIFIED INGREDIENT
     Indication: Colorectal cancer metastatic
     Dosage: 300 MG, QCY
     Route: 042
     Dates: start: 20190814, end: 20190814
  5. AFLIBERCEPT [Suspect]
     Active Substance: AFLIBERCEPT
     Dosage: 300 MG, QCY
     Route: 042
     Dates: start: 20191009, end: 20191009
  6. AFLIBERCEPT [Suspect]
     Active Substance: AFLIBERCEPT
     Dosage: 300 MG, QCY
     Route: 042
     Dates: start: 20191009, end: 20191009
  7. INVESTIGATIONAL PRODUCT [Suspect]
     Active Substance: INVESTIGATIONAL PRODUCT
     Dosage: 300 MG, QCY
     Route: 042
     Dates: start: 20191009, end: 20191009
  8. PLACEBO [Suspect]
     Active Substance: UNSPECIFIED INGREDIENT
     Dosage: 300 MG, QCY
     Route: 042
     Dates: start: 20191009, end: 20191009
  9. OXALIPLATIN [Suspect]
     Active Substance: OXALIPLATIN
     Indication: Colorectal cancer metastatic
     Dosage: 157.25 MG, QCY
     Route: 042
     Dates: start: 20190814, end: 20190814
  10. OXALIPLATIN [Suspect]
     Active Substance: OXALIPLATIN
     Dosage: 157.25 MG, QCY
     Route: 042
     Dates: start: 20191009, end: 20191009
  11. FLUOROURACIL [Suspect]
     Active Substance: FLUOROURACIL
     Indication: Colorectal cancer metastatic
     Dosage: 5180 MG, QCY
     Route: 042
     Dates: start: 20190814, end: 20190814
  12. FLUOROURACIL [Suspect]
     Active Substance: FLUOROURACIL
     Dosage: 5180 MG, QCY
     Route: 042
     Dates: start: 20191009, end: 20191009
  13. LEUCOVORIN [Suspect]
     Active Substance: LEUCOVORIN
     Indication: Colorectal cancer metastatic
     Dosage: 647 MG, QCY
     Route: 042
     Dates: start: 20190814, end: 20190814
  14. LEUCOVORIN [Suspect]
     Active Substance: LEUCOVORIN
     Dosage: 647 MG, QCY
     Route: 042
     Dates: start: 20191009, end: 20191009
  15. CANDESARTAN [Concomitant]
     Active Substance: CANDESARTAN
     Dosage: 16 MG, QD
     Dates: start: 2015
  16. AMLODIPINE [Concomitant]
     Active Substance: AMLODIPINE BESYLATE
     Dosage: 5 MG, QD
     Dates: start: 20190821
  17. HYDROCHLOROTHIAZIDE [Concomitant]
     Active Substance: HYDROCHLOROTHIAZIDE
     Dosage: 25 MG, QD
     Dates: start: 20190827

REACTIONS (2)
  - Embolism [Recovered/Resolved]
  - Hypertension [Recovered/Resolved]

NARRATIVE: CASE EVENT DATE: 20191009
